FAERS Safety Report 13418529 (Version 1)
Quarter: 2017Q2

REPORT INFORMATION
  Report Type: Spontaneous
  Country: BR (occurrence: BR)
  Receive Date: 20170406
  Receipt Date: 20170406
  Transmission Date: 20170830
  Serious: Yes (Other)
  Sender: FDA-Public Use
  Company Number: BR-CELGENEUS-BRA-20170310762

PATIENT

DRUGS (1)
  1. AZACITIDINE INJECTABLE [Suspect]
     Active Substance: AZACITIDINE
     Indication: MYELODYSPLASTIC SYNDROME
     Dosage: 75 MILLIGRAM/SQ. METER
     Route: 065

REACTIONS (7)
  - Acute myeloid leukaemia [Unknown]
  - Chronic graft versus host disease [Unknown]
  - Diarrhoea [Unknown]
  - Injection site pain [Unknown]
  - Haematotoxicity [Unknown]
  - Nausea [Unknown]
  - Vomiting [Unknown]
